FAERS Safety Report 5602071-3 (Version None)
Quarter: 2008Q1

REPORT INFORMATION
  Report Type: 
  Country: None (occurrence: None)
  Receive Date: 20080122
  Receipt Date: 20080122
  Transmission Date: 20080703
  Serious: No
  Sender: FDA-Public Use
  Company Number: None

PATIENT
  Age: 48 Year
  Sex: Male

DRUGS (1)
  1. EXTENDED PHENYTOIN SODIUM  100 MG   TARO [Suspect]
     Indication: CONVULSION
     Dosage: 300 MG  AM  PO
     Route: 048
     Dates: start: 20080108, end: 20080108

REACTIONS (4)
  - DIZZINESS [None]
  - MALAISE [None]
  - NAUSEA [None]
  - PHARMACEUTICAL PRODUCT COMPLAINT [None]
